FAERS Safety Report 14972951 (Version 14)
Quarter: 2019Q4

REPORT INFORMATION
  Report Type: Spontaneous
  Country: US (occurrence: US)
  Receive Date: 20180605
  Receipt Date: 20191209
  Transmission Date: 20200122
  Serious: Yes (Hospitalization, Other)
  Sender: FDA-Public Use
  Company Number: US-PFIZER INC-2018224760

PATIENT
  Age: 67 Year
  Sex: Female

DRUGS (201)
  1. DILANTIN [Suspect]
     Active Substance: PHENYTOIN
     Dosage: 1 DF, UNK, EVERY TWELVE HOURS
     Route: 048
     Dates: start: 20111129
  2. DILANTIN [Suspect]
     Active Substance: PHENYTOIN
     Dosage: 2 DF(TABLETS), TWICE DAILY
     Dates: start: 20080916
  3. DILANTIN [Suspect]
     Active Substance: PHENYTOIN
     Dosage: UNK, TWICE DAILY
     Dates: start: 19950322
  4. DILANTIN [Suspect]
     Active Substance: PHENYTOIN
     Dosage: UNK
     Dates: start: 19951117
  5. DILANTIN [Suspect]
     Active Substance: PHENYTOIN
     Dosage: UNK
     Dates: start: 20110706
  6. DILANTIN [Suspect]
     Active Substance: PHENYTOIN
     Dosage: UNK
     Dates: start: 20111004
  7. DILANTIN [Suspect]
     Active Substance: PHENYTOIN
     Dosage: UNK
     Dates: start: 20111129
  8. PHENOBARBITAL. [Concomitant]
     Active Substance: PHENOBARBITAL
     Dosage: UNK, TWICE DAILY
     Dates: start: 19951201
  9. PHENOBARBITAL. [Concomitant]
     Active Substance: PHENOBARBITAL
     Dosage: UNK
     Dates: start: 20010425
  10. PHENOBARBITAL. [Concomitant]
     Active Substance: PHENOBARBITAL
     Dosage: UNK
     Dates: start: 20101221
  11. PHENOBARBITAL. [Concomitant]
     Active Substance: PHENOBARBITAL
     Dosage: UNK
     Dates: start: 20111004
  12. PHENOBARBITAL. [Concomitant]
     Active Substance: PHENOBARBITAL
     Dosage: UNK
     Dates: start: 20130213
  13. PHENOBARBITAL. [Concomitant]
     Active Substance: PHENOBARBITAL
     Dosage: 1 TABLET MORNING 2 TABLET EVENING
     Dates: start: 20110706
  14. LANTUS [Concomitant]
     Active Substance: INSULIN GLARGINE
     Dosage: UNK
     Route: 058
  15. TOPROL XL [Concomitant]
     Active Substance: METOPROLOL SUCCINATE
     Indication: HYPERTENSION
     Dosage: 50 MG, 1X/DAY
     Route: 048
  16. CLINDAMYCIN. [Concomitant]
     Active Substance: CLINDAMYCIN
     Dosage: 600MG/4ML INJ
  17. ALLOPURINOL. [Concomitant]
     Active Substance: ALLOPURINOL
     Dosage: UNK
  18. ERGOCALCIFEROL. [Concomitant]
     Active Substance: ERGOCALCIFEROL
     Dosage: UNK
  19. HEPARIN [Concomitant]
     Active Substance: HEPARIN SODIUM
     Dosage: 5,000 UNITS/ML
  20. PRAVASTATIN. [Concomitant]
     Active Substance: PRAVASTATIN
     Indication: HYPERLIPIDAEMIA
     Dosage: UNK
     Dates: start: 20120331, end: 20180417
  21. ZONISAMIDE. [Concomitant]
     Active Substance: ZONISAMIDE
     Indication: EPILEPSY
     Dosage: 4 DF (TABLET), EVENING
     Dates: start: 20120331
  22. DILANTIN [Suspect]
     Active Substance: PHENYTOIN
     Indication: SEIZURE
     Dosage: 300 MG, 1X/DAY,(BEDTIME)
     Route: 048
     Dates: start: 20110428
  23. DILANTIN [Suspect]
     Active Substance: PHENYTOIN
     Dosage: 2 DF(TABLETS), TWICE DAILY
     Dates: start: 20070803
  24. DILANTIN [Suspect]
     Active Substance: PHENYTOIN
     Dosage: 2 DF(TABLETS), TWICE DAILY
     Dates: start: 20080229
  25. DILANTIN [Suspect]
     Active Substance: PHENYTOIN
     Dosage: 2 DF(TABLETS), TWICE DAILY
     Dates: start: 20090522
  26. PHENOBARBITAL. [Concomitant]
     Active Substance: PHENOBARBITAL
     Dosage: UNK, TWICE DAILY
     Dates: start: 19950307
  27. PHENOBARBITAL. [Concomitant]
     Active Substance: PHENOBARBITAL
     Dosage: UNK
     Dates: start: 20110426
  28. PHENOBARBITAL. [Concomitant]
     Active Substance: PHENOBARBITAL
     Dosage: UNK
     Dates: start: 20110706
  29. PHENOBARBITAL. [Concomitant]
     Active Substance: PHENOBARBITAL
     Dosage: UNK
     Dates: start: 20111129
  30. PHENOBARBITAL. [Concomitant]
     Active Substance: PHENOBARBITAL
     Dosage: 129.6 MG, 1X/DAY
     Route: 048
  31. PHENOBARBITAL. [Concomitant]
     Active Substance: PHENOBARBITAL
     Dosage: 2 TABLET MORNING 4 TABLET EVENING
     Dates: start: 20100112
  32. PHENOBARBITAL. [Concomitant]
     Active Substance: PHENOBARBITAL
     Dosage: 2 TABLET MORNING 4 TABLET EVENING
     Dates: start: 20150629
  33. KEPPRA [Concomitant]
     Active Substance: LEVETIRACETAM
     Indication: EPILEPSY
     Dosage: 500 MG, 2X/DAY
  34. KEPPRA [Concomitant]
     Active Substance: LEVETIRACETAM
     Dosage: 750 MG, 2X/DAY  (EVERY 12 HOURS)
     Route: 048
     Dates: start: 20160929, end: 20160929
  35. KEPPRA [Concomitant]
     Active Substance: LEVETIRACETAM
     Dosage: UNK, TWICE DAILY
     Dates: start: 20180424
  36. HYDROCHLOROTHIAZIDE. [Concomitant]
     Active Substance: HYDROCHLOROTHIAZIDE
     Dosage: 25 MG, 1X/DAY
     Route: 048
  37. FUROSEMIDE. [Concomitant]
     Active Substance: FUROSEMIDE
     Dosage: 20 MG, 1X/DAY
     Route: 048
  38. PRAVACHOL [Concomitant]
     Active Substance: PRAVASTATIN SODIUM
     Dosage: 80 MG, 1X/DAY
     Route: 048
  39. METFORMIN HCL [Concomitant]
     Active Substance: METFORMIN HYDROCHLORIDE
     Dosage: 500 MG, 2X/DAY
     Route: 048
  40. DIOVAN [Concomitant]
     Active Substance: VALSARTAN
     Dosage: 80 MG, 1X/DAY
     Route: 048
  41. VANCOMYCIN [Concomitant]
     Active Substance: VANCOMYCIN
     Dosage: UNK
  42. CALCIUM [Concomitant]
     Active Substance: CALCIUM
     Indication: SUPPLEMENTATION THERAPY
     Dosage: UNK
     Dates: start: 20120401, end: 20180417
  43. LORAZEPAM. [Concomitant]
     Active Substance: LORAZEPAM
     Dosage: UNK UNK, EVERY 4 HOURS AS NEEDED
     Route: 030
     Dates: start: 20180424
  44. DILANTIN [Suspect]
     Active Substance: PHENYTOIN
     Dosage: 500 MG, DAILY
     Route: 048
     Dates: start: 20110929, end: 20110929
  45. DILANTIN [Suspect]
     Active Substance: PHENYTOIN
     Dosage: 4 DF(TABLETS) AT BEDTIME
     Dates: start: 19980717
  46. DILANTIN [Suspect]
     Active Substance: PHENYTOIN
     Dosage: 2 DF(TABLETS), TWICE DAILY
     Dates: start: 20110318
  47. DILANTIN [Suspect]
     Active Substance: PHENYTOIN
     Dosage: 3 DF (TABLETS), BEDTIME
     Dates: start: 20110909
  48. DILANTIN [Suspect]
     Active Substance: PHENYTOIN
     Dosage: UNK, 2X/DAY (TWICE DAILY)
     Dates: start: 20080916
  49. PHENOBARBITAL. [Concomitant]
     Active Substance: PHENOBARBITAL
     Dosage: UNK
     Dates: start: 20101012
  50. PHENOBARBITAL. [Concomitant]
     Active Substance: PHENOBARBITAL
     Dosage: UNK
     Dates: start: 20110922
  51. PHENOBARBITAL. [Concomitant]
     Active Substance: PHENOBARBITAL
     Dosage: 64.8 MG, 1X/DAY
     Route: 048
  52. PHENOBARBITAL. [Concomitant]
     Active Substance: PHENOBARBITAL
     Dosage: 2 DF (TABLETS), TWICE DAILY
     Dates: start: 19960712
  53. PHENOBARBITAL. [Concomitant]
     Active Substance: PHENOBARBITAL
     Dosage: 2 TABLET MORNING 4 TABLET EVENING
     Dates: start: 20080521
  54. PHENOBARBITAL. [Concomitant]
     Active Substance: PHENOBARBITAL
     Dosage: 2 TABLET MORNING 4 TABLET EVENING
     Dates: start: 20090718
  55. PHENOBARBITAL. [Concomitant]
     Active Substance: PHENOBARBITAL
     Dosage: 2 TABLET MORNING 4 TABLET EVENING
     Dates: start: 20091202
  56. PHENOBARBITAL. [Concomitant]
     Active Substance: PHENOBARBITAL
     Dosage: 1 DF (TABLET), DAILY
     Dates: start: 20140908
  57. KEPPRA [Concomitant]
     Active Substance: LEVETIRACETAM
     Dosage: UNK, EVERY 12 HOURS
     Dates: start: 20160927
  58. ULORIC [Concomitant]
     Active Substance: FEBUXOSTAT
     Dosage: 40 MG, 1X/DAY
     Route: 048
  59. TOPROL XL [Concomitant]
     Active Substance: METOPROLOL SUCCINATE
     Dosage: UNK
  60. NOVOLOG [Concomitant]
     Active Substance: INSULIN ASPART
     Dosage: UNK
     Route: 058
  61. LOVASTATIN. [Concomitant]
     Active Substance: LOVASTATIN
     Dosage: 80 MG, 1X/DAY
     Route: 048
  62. NORVASC [Concomitant]
     Active Substance: AMLODIPINE BESYLATE
     Dosage: 5 MG, 1X/DAY
     Route: 048
  63. ZETIA [Concomitant]
     Active Substance: EZETIMIBE
     Dosage: 10 MG, 1X/DAY
     Route: 048
  64. DICLOFENAC SODIUM. [Concomitant]
     Active Substance: DICLOFENAC SODIUM
     Dosage: 1 %, 3X/DAY
  65. CITALOPRAM [Concomitant]
     Active Substance: CITALOPRAM HYDROBROMIDE
     Indication: DEPRESSION
     Dosage: UNK
     Dates: start: 20120401, end: 20150629
  66. GLYBURIDE. [Concomitant]
     Active Substance: GLYBURIDE
     Dosage: UNK
  67. PRAVASTATIN. [Concomitant]
     Active Substance: PRAVASTATIN
     Dosage: UNK
  68. BUMEX [Concomitant]
     Active Substance: BUMETANIDE
     Indication: RENAL DISORDER
     Dosage: UNK
  69. DILANTIN [Suspect]
     Active Substance: PHENYTOIN
     Dosage: 300 MG, DAILY AT BEDTIME
     Route: 048
     Dates: start: 20110928, end: 20111002
  70. DILANTIN [Suspect]
     Active Substance: PHENYTOIN
     Dosage: 2 DF, 2X/DAY
     Route: 048
     Dates: start: 20110929
  71. DILANTIN [Suspect]
     Active Substance: PHENYTOIN
     Dosage: 2 DF(TABLETS), TWICE DAILY
     Dates: start: 20071024
  72. DILANTIN [Suspect]
     Active Substance: PHENYTOIN
     Dosage: UNK, TWICE DAILY
     Dates: start: 19950307
  73. DILANTIN [Suspect]
     Active Substance: PHENYTOIN
     Dosage: UNK
     Dates: start: 20101008
  74. DILANTIN [Suspect]
     Active Substance: PHENYTOIN
     Dosage: UNK
     Dates: start: 20101221
  75. DILANTIN [Suspect]
     Active Substance: PHENYTOIN
     Dosage: UNK
     Dates: start: 20110928
  76. PHENOBARBITAL. [Concomitant]
     Active Substance: PHENOBARBITAL
     Dosage: UNK
     Dates: start: 20010907
  77. PHENOBARBITAL. [Concomitant]
     Active Substance: PHENOBARBITAL
     Dosage: UNK
     Dates: start: 20110428
  78. PHENOBARBITAL. [Concomitant]
     Active Substance: PHENOBARBITAL
     Dosage: 2 DF (TABLETS), TWICE DAILY
     Dates: start: 19960229
  79. PHENOBARBITAL. [Concomitant]
     Active Substance: PHENOBARBITAL
     Dosage: 2 TABLET MORNING 4 TABLET EVENING
     Dates: start: 20090619
  80. ASPIR 81 [Concomitant]
     Active Substance: ASPIRIN
     Dosage: 81 MG, 1X/DAY
     Route: 048
  81. VITAMIN D2 [Concomitant]
     Active Substance: ERGOCALCIFEROL
     Dosage: 5000 IU, WEEKLY
     Route: 048
  82. VITAMIN C [Concomitant]
     Active Substance: ASCORBIC ACID
     Indication: SUPPLEMENTATION THERAPY
     Dosage: UNK
  83. LOSARTAN. [Concomitant]
     Active Substance: LOSARTAN
     Indication: HYPERTENSION
     Dosage: UNK
  84. ZONISAMIDE. [Concomitant]
     Active Substance: ZONISAMIDE
     Dosage: 1 (UNKNOWN FORMULATION), AT EVERY BEDTIME
     Dates: start: 20120331
  85. ZONISAMIDE. [Concomitant]
     Active Substance: ZONISAMIDE
     Dosage: 1 (UNKNOWN FORMULATION), AT EVERY BEDTIME
     Dates: start: 20180417
  86. DILANTIN [Suspect]
     Active Substance: PHENYTOIN
     Dosage: 200 MG, DAILY EVERY 12 HOURS
     Route: 048
     Dates: start: 20111002, end: 20111004
  87. DILANTIN [Suspect]
     Active Substance: PHENYTOIN
     Dosage: 2 DF, 2X/DAY
     Route: 048
     Dates: start: 20111129
  88. DILANTIN [Suspect]
     Active Substance: PHENYTOIN
     Dosage: 2 DF(TABLETS), TWICE DAILY
     Dates: start: 20080328
  89. DILANTIN [Suspect]
     Active Substance: PHENYTOIN
     Dosage: UNK
     Dates: start: 19981106
  90. DILANTIN [Suspect]
     Active Substance: PHENYTOIN
     Dosage: UNK, TWICE DAILY
     Dates: start: 20080521
  91. DILANTIN [Suspect]
     Active Substance: PHENYTOIN
     Dosage: UNK
     Dates: start: 20080530
  92. PHENOBARBITAL. [Concomitant]
     Active Substance: PHENOBARBITAL
     Indication: SEIZURE
     Dosage: UNK
     Dates: start: 1966, end: 2014
  93. PHENOBARBITAL. [Concomitant]
     Active Substance: PHENOBARBITAL
     Dosage: UNK
     Dates: start: 20090619
  94. PHENOBARBITAL. [Concomitant]
     Active Substance: PHENOBARBITAL
     Dosage: UNK
     Dates: start: 20101008
  95. PHENOBARBITAL. [Concomitant]
     Active Substance: PHENOBARBITAL
     Dosage: UNK
     Dates: start: 20110928
  96. PHENOBARBITAL. [Concomitant]
     Active Substance: PHENOBARBITAL
     Dosage: UNK
     Dates: start: 20111001
  97. PHENOBARBITAL. [Concomitant]
     Active Substance: PHENOBARBITAL
     Dosage: 2 TABLET MORNING 4 TABLET EVENING
     Dates: start: 20080328
  98. PHENOBARBITAL. [Concomitant]
     Active Substance: PHENOBARBITAL
     Dosage: 2 TABLET MORNING 4 TABLET EVENING
     Dates: start: 20080916
  99. PHENOBARBITAL. [Concomitant]
     Active Substance: PHENOBARBITAL
     Dosage: 2 TABLET MORNING 4 TABLET EVENING
     Dates: start: 20080916
  100. PHENOBARBITAL. [Concomitant]
     Active Substance: PHENOBARBITAL
     Dosage: 2 TABLET MORNING 4 TABLET EVENING
     Dates: start: 20090522
  101. PHENOBARBITAL. [Concomitant]
     Active Substance: PHENOBARBITAL
     Dosage: 2 TABLET MORNING 4 TABLET EVENING
     Dates: start: 20100908
  102. PHENOBARBITAL. [Concomitant]
     Active Substance: PHENOBARBITAL
     Dosage: 1 TABLET MORNING 2 TABLET EVENING
     Dates: start: 20110809
  103. PHENOBARBITAL. [Concomitant]
     Active Substance: PHENOBARBITAL
     Dosage: 1 TABLET MORNING 2 TABLET EVENING
     Dates: start: 20110909
  104. PHENOBARBITAL. [Concomitant]
     Active Substance: PHENOBARBITAL
     Dosage: 4 DF (TABLET), EVERY TWELVE HOURS
     Route: 048
     Dates: start: 20111129
  105. PHENOBARBITAL. [Concomitant]
     Active Substance: PHENOBARBITAL
     Dosage: 2 TABLET MORNING 4 TABLET EVENING
     Dates: start: 20120331
  106. PHENOBARBITAL. [Concomitant]
     Active Substance: PHENOBARBITAL
     Dosage: 2 TABLET MORNING 4 TABLET EVENING
     Dates: start: 20120331
  107. KEPPRA [Concomitant]
     Active Substance: LEVETIRACETAM
     Dosage: UNK, TWICE DAILY
     Dates: start: 20180417
  108. LISINOPRIL. [Concomitant]
     Active Substance: LISINOPRIL
     Dosage: 80 MG, 1X/DAY
     Route: 048
  109. VITAMIN D [Concomitant]
     Active Substance: VITAMIN D NOS
     Indication: SUPPLEMENTATION THERAPY
     Dosage: 2000 IU, 1X/DAY
     Route: 048
  110. DIPHENHYDRAMINE HCL [Concomitant]
     Active Substance: DIPHENHYDRAMINE HYDROCHLORIDE
     Indication: PRURITUS
     Dosage: 25 MG, AS NEEDED (EVERY 6 HOURS)
     Route: 048
  111. METOPROLOL SUCCINATE. [Concomitant]
     Active Substance: METOPROLOL SUCCINATE
     Dosage: 25 MG, 1X/DAY
     Route: 048
  112. LIPITOR [Concomitant]
     Active Substance: ATORVASTATIN CALCIUM
     Dosage: 40 MG, 1X/DAY
     Route: 048
  113. IRON [Concomitant]
     Active Substance: IRON
     Indication: SUPPLEMENTATION THERAPY
     Dosage: UNK
  114. ZONISAMIDE. [Concomitant]
     Active Substance: ZONISAMIDE
     Dosage: 1 (UNKNOWN FORMULATION), AT EVERY BEDTIME
     Dates: start: 20120401
  115. ZONISAMIDE. [Concomitant]
     Active Substance: ZONISAMIDE
     Dosage: UNK UNK, DAILY
     Dates: start: 20140904
  116. ZONISAMIDE. [Concomitant]
     Active Substance: ZONISAMIDE
     Dosage: 1 (UNKNOWN FORMULATION), AT EVERY BEDTIME
     Dates: start: 20180424
  117. DILANTIN [Suspect]
     Active Substance: PHENYTOIN
     Indication: IDIOPATHIC GENERALISED EPILEPSY
     Dosage: 200 MG, 2X/DAY
     Route: 048
     Dates: start: 20101221, end: 20101224
  118. DILANTIN [Suspect]
     Active Substance: PHENYTOIN
     Dosage: 2 DF(TABLETS), TWICE DAILY
     Dates: start: 19960315
  119. DILANTIN [Suspect]
     Active Substance: PHENYTOIN
     Dosage: 3 DF(TABLETS), TWICE DAILY
     Dates: start: 19960712
  120. DILANTIN [Suspect]
     Active Substance: PHENYTOIN
     Dosage: 2 DF(TABLETS), TWICE DAILY
     Dates: start: 20080114
  121. DILANTIN [Suspect]
     Active Substance: PHENYTOIN
     Dosage: 2 DF(TABLETS), TWICE DAILY
     Dates: start: 20080521
  122. DILANTIN [Suspect]
     Active Substance: PHENYTOIN
     Dosage: 2 DF(TABLETS), TWICE DAILY
     Dates: start: 20081203
  123. DILANTIN [Suspect]
     Active Substance: PHENYTOIN
     Dosage: 2 DF(TABLETS), TWICE DAILY
     Dates: start: 20090619
  124. DILANTIN [Suspect]
     Active Substance: PHENYTOIN
     Dosage: 2 DF(TABLETS), TWICE DAILY
     Dates: start: 20090718
  125. DILANTIN [Suspect]
     Active Substance: PHENYTOIN
     Dosage: 3 DF (TABLETS), BEDTIME
     Dates: start: 20110706
  126. DILANTIN [Suspect]
     Active Substance: PHENYTOIN
     Dosage: UNK, TWICE DAILY
     Dates: start: 19950409
  127. DILANTIN [Suspect]
     Active Substance: PHENYTOIN
     Dosage: UNK
     Dates: start: 19960104
  128. DILANTIN [Suspect]
     Active Substance: PHENYTOIN
     Dosage: UNK
     Dates: start: 20021204
  129. DILANTIN [Suspect]
     Active Substance: PHENYTOIN
     Dosage: UNK
     Dates: start: 20090619
  130. DILANTIN [Suspect]
     Active Substance: PHENYTOIN
     Dosage: UNK
     Dates: start: 20110428
  131. PHENOBARBITAL. [Concomitant]
     Active Substance: PHENOBARBITAL
     Dosage: UNK, TWICE DAILY
     Dates: start: 19950409
  132. PHENOBARBITAL. [Concomitant]
     Active Substance: PHENOBARBITAL
     Dosage: UNK
     Dates: start: 19960122
  133. PHENOBARBITAL. [Concomitant]
     Active Substance: PHENOBARBITAL
     Dosage: UNK
     Dates: start: 20101223
  134. PHENOBARBITAL. [Concomitant]
     Active Substance: PHENOBARBITAL
     Dosage: 2 TABLET MORNING 4 TABLET EVENING
     Dates: start: 20070803
  135. PHENOBARBITAL. [Concomitant]
     Active Substance: PHENOBARBITAL
     Dosage: 2 TABLET MORNING 4 TABLET EVENING
     Dates: start: 20071024
  136. PHENOBARBITAL. [Concomitant]
     Active Substance: PHENOBARBITAL
     Dosage: 2 TABLET MORNING 4 TABLET EVENING
     Dates: start: 20080114
  137. PHENOBARBITAL. [Concomitant]
     Active Substance: PHENOBARBITAL
     Dosage: 2 TABLET MORNING 4 TABLET EVENING
     Dates: start: 20090818
  138. LUMINAL [Concomitant]
     Active Substance: PHENOBARBITAL SODIUM
     Indication: SEIZURE
     Dosage: 32.4 MG, 2X/DAY
     Route: 048
     Dates: start: 20101221, end: 20110426
  139. LUMINAL [Concomitant]
     Active Substance: PHENOBARBITAL SODIUM
     Dosage: 129.6 MG, DAILY AT BEDTIME
     Route: 048
     Dates: start: 20110428, end: 20110928
  140. KEPPRA [Concomitant]
     Active Substance: LEVETIRACETAM
     Dosage: 1000 MG, 2X/DAY (EVERY 12 HOURS)
     Route: 048
     Dates: start: 20160927, end: 20160927
  141. LISINOPRIL. [Concomitant]
     Active Substance: LISINOPRIL
     Dosage: 5 MG, 1X/DAY
     Route: 048
  142. OXYBUTYNIN CHLORIDE. [Concomitant]
     Active Substance: OXYBUTYNIN CHLORIDE
     Dosage: 10 MG, 1X/DAY
     Route: 048
  143. LANTUS [Concomitant]
     Active Substance: INSULIN GLARGINE
     Indication: DIABETES MELLITUS
     Dosage: 100 ML, 1X/DAY
     Route: 058
  144. METOPROLOL. [Concomitant]
     Active Substance: METOPROLOL
     Indication: HYPERTENSION
     Dosage: UNK
     Dates: start: 20120331, end: 20180417
  145. METOPROLOL. [Concomitant]
     Active Substance: METOPROLOL
     Dosage: UNK
  146. SENNA ALEXANDRINA [Concomitant]
     Active Substance: SENNA LEAF
     Dosage: UNK
  147. FISH OIL [Concomitant]
     Active Substance: FISH OIL
     Indication: SUPPLEMENTATION THERAPY
     Dosage: UNK
  148. ZONISAMIDE. [Concomitant]
     Active Substance: ZONISAMIDE
     Dosage: 1 (UNKNOWN FORMULATION), AT EVERY BEDTIME
     Dates: start: 20130213
  149. ZONISAMIDE. [Concomitant]
     Active Substance: ZONISAMIDE
     Dosage: 1 (UNKNOWN FORMULATION), AT EVERY BEDTIME
     Dates: start: 20160927
  150. ZONISAMIDE. [Concomitant]
     Active Substance: ZONISAMIDE
     Dosage: UNK
  151. DILANTIN [Suspect]
     Active Substance: PHENYTOIN
     Dosage: 3 DF(TABLETS), TWICE DAILY
     Dates: start: 19960229
  152. DILANTIN [Suspect]
     Active Substance: PHENYTOIN
     Dosage: 2 DF(TABLETS), TWICE DAILY
     Dates: start: 20100112
  153. DILANTIN [Suspect]
     Active Substance: PHENYTOIN
     Dosage: 2 DF(TABLETS), TWICE DAILY
     Dates: start: 20100908
  154. DILANTIN [Suspect]
     Active Substance: PHENYTOIN
     Dosage: UNK
     Dates: start: 20011211
  155. DILANTIN [Suspect]
     Active Substance: PHENYTOIN
     Dosage: UNK
     Dates: start: 20101223
  156. DILANTIN [Suspect]
     Active Substance: PHENYTOIN
     Dosage: UNK
     Dates: start: 20111001
  157. DILANTIN [Suspect]
     Active Substance: PHENYTOIN
     Dosage: UNK
     Dates: start: 20160927
  158. PHENOBARBITAL. [Concomitant]
     Active Substance: PHENOBARBITAL
     Dosage: UNK, TWICE DAILY
     Dates: start: 19950322
  159. PHENOBARBITAL. [Concomitant]
     Active Substance: PHENOBARBITAL
     Dosage: UNK
     Dates: start: 19951117
  160. PHENOBARBITAL. [Concomitant]
     Active Substance: PHENOBARBITAL
     Dosage: UNK
     Dates: start: 19980717
  161. PHENOBARBITAL. [Concomitant]
     Active Substance: PHENOBARBITAL
     Dosage: UNK
     Dates: start: 20011010
  162. PHENOBARBITAL. [Concomitant]
     Active Substance: PHENOBARBITAL
     Dosage: UNK
     Dates: start: 20080530
  163. PHENOBARBITAL. [Concomitant]
     Active Substance: PHENOBARBITAL
     Dosage: 2 DF (TABLETS), TWICE DAILY
     Dates: start: 19960315
  164. PHENOBARBITAL. [Concomitant]
     Active Substance: PHENOBARBITAL
     Dosage: 2 TABLET MORNING 4 TABLET EVENING
     Dates: start: 20080229
  165. PHENOBARBITAL. [Concomitant]
     Active Substance: PHENOBARBITAL
     Dosage: 2 TABLET MORNING 4 TABLET EVENING
     Dates: start: 20080521
  166. PHENOBARBITAL. [Concomitant]
     Active Substance: PHENOBARBITAL
     Dosage: 2 TABLET MORNING 4 TABLET EVENING
     Dates: start: 20120401
  167. LUMINAL [Concomitant]
     Active Substance: PHENOBARBITAL SODIUM
     Dosage: 64.8 MG, EVERY MORNING
     Route: 048
     Dates: start: 20110428, end: 20110928
  168. METOPROLOL SUCCINATE. [Concomitant]
     Active Substance: METOPROLOL SUCCINATE
     Dosage: 50 MG, 1X/DAY
     Route: 048
  169. BUROWS [Concomitant]
     Dosage: UNK, 2X/DAY
     Dates: start: 20120317
  170. ZONISAMIDE. [Concomitant]
     Active Substance: ZONISAMIDE
     Indication: EPILEPSY
     Dosage: 1 DF (CAP) DAY AND BDTIME; INCREASE BY 100MG EACH WEEK TO TARGET 400MG EVERY BEDTIME BY WEEK 4
     Route: 048
     Dates: start: 20111129
  171. CALCIUM [Concomitant]
     Active Substance: CALCIUM
     Dosage: UNK
  172. ASPIRIN. [Concomitant]
     Active Substance: ASPIRIN
     Indication: PROPHYLAXIS
     Dosage: UNK
     Dates: start: 20120331, end: 20180417
  173. ZONISAMIDE. [Concomitant]
     Active Substance: ZONISAMIDE
     Dosage: 2 DF (TABLET), EVERYDAY
     Dates: start: 20140908
  174. ZONISAMIDE. [Concomitant]
     Active Substance: ZONISAMIDE
     Dosage: 4 DF (TABLET), EVENING
     Dates: start: 20150629
  175. ZONISAMIDE. [Concomitant]
     Active Substance: ZONISAMIDE
     Indication: EPILEPSY
     Dosage: 1 (UNKNOWN FORMULATION), AT EVERY BEDTIME
     Dates: start: 20111129
  176. DILANTIN [Suspect]
     Active Substance: PHENYTOIN
     Dosage: 300 MG, DAILY AT NIGHT
     Route: 048
     Dates: start: 20160926, end: 20160927
  177. DILANTIN [Suspect]
     Active Substance: PHENYTOIN
     Dosage: 3 DF(TABLETS), TWICE DAILY
     Dates: start: 19970718
  178. DILANTIN [Suspect]
     Active Substance: PHENYTOIN
     Dosage: 4 DF(TABLETS) AT BEDTIME
     Dates: start: 19980917
  179. DILANTIN [Suspect]
     Active Substance: PHENYTOIN
     Dosage: 2 DF(TABLETS), TWICE DAILY
     Dates: start: 20090818
  180. DILANTIN [Suspect]
     Active Substance: PHENYTOIN
     Dosage: 2 DF(TABLETS), TWICE DAILY
     Dates: start: 20091202
  181. DILANTIN [Suspect]
     Active Substance: PHENYTOIN
     Dosage: 3 DF (TABLETS), BEDTIME
     Dates: start: 20110809
  182. DILANTIN [Suspect]
     Active Substance: PHENYTOIN
     Dosage: UNK
     Dates: start: 20101012
  183. DILANTIN [Suspect]
     Active Substance: PHENYTOIN
     Dosage: UNK
     Dates: start: 20110426
  184. DILANTIN [Suspect]
     Active Substance: PHENYTOIN
     Dosage: UNK
     Dates: start: 20110809
  185. DILANTIN [Suspect]
     Active Substance: PHENYTOIN
     Dosage: UNK
     Dates: start: 20110922
  186. PHENOBARBITAL. [Concomitant]
     Active Substance: PHENOBARBITAL
     Dosage: UNK
     Dates: start: 19960104
  187. PHENOBARBITAL. [Concomitant]
     Active Substance: PHENOBARBITAL
     Dosage: UNK
     Dates: start: 20011105
  188. PHENOBARBITAL. [Concomitant]
     Active Substance: PHENOBARBITAL
     Dosage: UNK
     Dates: start: 20110809
  189. PHENOBARBITAL. [Concomitant]
     Active Substance: PHENOBARBITAL
     Dosage: 2 TABLET MORNING 4 TABLET EVENING
     Dates: start: 20081203
  190. PHENOBARBITAL. [Concomitant]
     Active Substance: PHENOBARBITAL
     Dosage: 2 TABLET MORNING 4 TABLET EVENING
     Dates: start: 20110318
  191. KEPPRA [Concomitant]
     Active Substance: LEVETIRACETAM
     Dosage: UNK
  192. BACLOFEN. [Concomitant]
     Active Substance: BACLOFEN
     Dosage: 10 MG, 3X/DAY
     Route: 048
  193. PERCOCET [Concomitant]
     Active Substance: ACETAMINOPHEN\OXYCODONE HYDROCHLORIDE
     Dosage: 5 MG-325 MG, EVERY 6-8 HOURS
     Route: 048
  194. VITAMIN D [Concomitant]
     Active Substance: VITAMIN D NOS
     Dosage: UNK
     Dates: start: 20120331, end: 20180417
  195. VITAMIN D [Concomitant]
     Active Substance: VITAMIN D NOS
     Dosage: UNK; EVERY 14 DAYS
  196. COLCHICINE. [Concomitant]
     Active Substance: COLCHICINE
     Dosage: 0.6 MG, (EVERY 6-8 HOURS)
     Route: 048
  197. POTASSIUM CHLORIDE. [Concomitant]
     Active Substance: POTASSIUM CHLORIDE
     Dosage: 10 MEQ, 1X/DAY
     Route: 048
  198. LOVASTATIN. [Concomitant]
     Active Substance: LOVASTATIN
     Dosage: 40 MG, 1X/DAY
     Route: 048
  199. DEXTROSE 5% [Concomitant]
     Active Substance: DEXTROSE
     Dosage: 100ML/500ML
  200. CALCIUM CARBONATE. [Concomitant]
     Active Substance: CALCIUM CARBONATE
     Dosage: 500MG CHEWTAB (200MG ELEM)
  201. ATIVAN [Concomitant]
     Active Substance: LORAZEPAM
     Indication: SEIZURE
     Dosage: UNK UNK, AS NEEDED
     Route: 030
     Dates: start: 20180417

REACTIONS (18)
  - Intervertebral disc disorder [Unknown]
  - Aphasia [Unknown]
  - Anxiety [Not Recovered/Not Resolved]
  - Muscular weakness [Not Recovered/Not Resolved]
  - Thoracic spinal stenosis [Unknown]
  - Dysarthria [Not Recovered/Not Resolved]
  - Amnesia [Not Recovered/Not Resolved]
  - Neuropathy peripheral [Not Recovered/Not Resolved]
  - Cerebral atrophy [Unknown]
  - Persistent depressive disorder [Unknown]
  - Cerebellar atrophy [Not Recovered/Not Resolved]
  - Toxicity to various agents [Recovered/Resolved]
  - Cerebellar ataxia [Not Recovered/Not Resolved]
  - Cognitive disorder [Not Recovered/Not Resolved]
  - Balance disorder [Not Recovered/Not Resolved]
  - Coordination abnormal [Not Recovered/Not Resolved]
  - Periorbital swelling [Unknown]
  - Soft tissue swelling [Unknown]

NARRATIVE: CASE EVENT DATE: 20110427
